FAERS Safety Report 5989453-5 (Version None)
Quarter: 2008Q4

REPORT INFORMATION
  Report Type: 
  Country: None (occurrence: None)
  Receive Date: 20081205
  Receipt Date: 20081126
  Transmission Date: 20090506
  Serious: Yes (Disabling)
  Sender: FDA-Public Use
  Company Number: APP200801189

PATIENT
  Sex: Male

DRUGS (2)
  1. SENSORCAINE [Suspect]
     Indication: MUSCULOSKELETAL PAIN
     Dosage: CONTINUOUS VIA PUMP, INTRA-ARTICULAR
     Route: 014
     Dates: start: 20070220
  2. I-FLOW PAIN PUMP [Suspect]
     Indication: MUSCULOSKELETAL PAIN
     Dates: start: 20070220

REACTIONS (5)
  - CHONDROLYSIS [None]
  - INFUSION SITE MOBILITY DECREASED [None]
  - JOINT RANGE OF MOTION DECREASED [None]
  - MEDICAL DEVICE COMPLICATION [None]
  - MUSCULOSKELETAL PAIN [None]
